FAERS Safety Report 7464018-7 (Version None)
Quarter: 2011Q2

REPORT INFORMATION
  Report Type: 
  Country: None (occurrence: None)
  Receive Date: 20110506
  Receipt Date: 20110421
  Transmission Date: 20111010
  Serious: No
  Sender: FDA-Public Use
  Company Number: US-B.I. PHARMACEUTICALS,INC./RIDGEFIELD-2011-BP-05808BP

PATIENT
  Sex: Male

DRUGS (6)
  1. STOOL SOFTENER [Concomitant]
     Indication: CONSTIPATION
     Route: 048
  2. PRADAXA [Suspect]
     Indication: ANTICOAGULANT THERAPY
  3. KLOR-CON [Concomitant]
     Indication: MYOCARDIAL INFARCTION
     Route: 048
  4. PRADAXA [Suspect]
     Indication: CARDIAC DISORDER
     Dosage: 300 MG
     Route: 048
     Dates: start: 20110101
  5. RANEXA [Concomitant]
     Indication: MYOCARDIAL INFARCTION
     Dosage: 500 MG
     Route: 048
  6. ASPIRIN [Concomitant]
     Indication: MYOCARDIAL INFARCTION
     Dosage: 81 MG
     Route: 048

REACTIONS (1)
  - CONSTIPATION [None]
